FAERS Safety Report 7360581-5 (Version None)
Quarter: 2011Q1

REPORT INFORMATION
  Report Type: 
  Country: None (occurrence: None)
  Receive Date: 20110309
  Receipt Date: 20110221
  Transmission Date: 20110831
  Serious: Yes (Hospitalization)
  Sender: FDA-Public Use
  Company Number: 2011MA001614

PATIENT
  Age: 27 Year
  Sex: Male

DRUGS (2)
  1. RIFAMPIN [Suspect]
     Indication: BRUCELLOSIS
  2. DOXYCYCLINE [Concomitant]

REACTIONS (3)
  - HAEMODIALYSIS [None]
  - TUBULOINTERSTITIAL NEPHRITIS [None]
  - RENAL FAILURE ACUTE [None]
